FAERS Safety Report 10081527 (Version 2)
Quarter: 2014Q2

REPORT INFORMATION
  Report Type: Spontaneous
  Country: US (occurrence: US)
  Receive Date: 20140416
  Receipt Date: 20140604
  Transmission Date: 20141212
  Serious: Yes (Other)
  Sender: FDA-Public Use
  Company Number: US-PFIZER INC-2014102800

PATIENT
  Age: 58 Year
  Sex: Male
  Weight: 108.84 kg

DRUGS (14)
  1. REVATIO [Suspect]
     Indication: CARDIOVASCULAR DISORDER
     Dosage: 20 MG, 3X/DAY
     Route: 048
  2. PANTOPRAZOLE [Concomitant]
     Dosage: 3 DF, 1X/DAY (EVERY MORNING BEFORE BREAKFAST)
  3. HYDROCODONE [Concomitant]
     Indication: PAIN
     Dosage: UNK, 1X/DAY
  4. SPIRONOLACTONE [Concomitant]
     Dosage: 50 MG, 2X/DAY
  5. ACETAZOLAMIDE [Concomitant]
     Dosage: 150 MG TABLET, 1X/DAY
  6. TRAZODONE [Concomitant]
     Dosage: 50 MG TABLET, 1X/DAY (AT BEDTIME)
  7. CITALOPRAM [Concomitant]
     Dosage: 20 MG, 1X/DAY (EVERY NIGHT)
  8. WARFARIN [Concomitant]
     Dosage: 5 MG TABLET, 1X/DAY (AT NIGHT)
  9. POTASSIUM [Concomitant]
     Dosage: 1 DF, 1X/DAY (EVERY MORNING)
  10. AMIODARONE [Concomitant]
     Dosage: 200 MG ONE TABLET, 2X/DAY
  11. SIMVASTATIN [Concomitant]
     Dosage: 1 DF, 1X/DAY (EVERY NIGHT AT BEDTIME)
  12. FUROSEMIDE [Concomitant]
     Dosage: 80 MG ONE TABLET, 2X/DAY
  13. MAGNESIUM OXIDE [Concomitant]
     Dosage: 400 MG ONE TABLET, 1X/DAY
  14. ASPIRIN [Concomitant]
     Dosage: UNK

REACTIONS (1)
  - Cardiac disorder [Unknown]
